FAERS Safety Report 14379685 (Version 1)
Quarter: 2018Q1

REPORT INFORMATION
  Report Type: Spontaneous
  Country: US (occurrence: US)
  Receive Date: 20180111
  Receipt Date: 20180111
  Transmission Date: 20180509
  Serious: Yes (Hospitalization)
  Sender: FDA-Public Use
  Company Number: None

PATIENT
  Age: 54 Year
  Sex: Male
  Weight: 89.5 kg

DRUGS (3)
  1. ELOXATIN [Suspect]
     Active Substance: OXALIPLATIN
     Dates: end: 20171222
  2. 5-FLUOROURACIL (5-FU) [Suspect]
     Active Substance: FLUOROURACIL
     Dates: end: 20171222
  3. LEUCOVORIN CALCIUM. [Suspect]
     Active Substance: LEUCOVORIN CALCIUM
     Dates: end: 20171222

REACTIONS (6)
  - Atrial fibrillation [None]
  - Febrile neutropenia [None]
  - Thrombocytopenia [None]
  - Escherichia test positive [None]
  - Streptococcus test positive [None]
  - Hypotension [None]

NARRATIVE: CASE EVENT DATE: 20180106
